FAERS Safety Report 15460762 (Version 2)
Quarter: 2020Q2

REPORT INFORMATION
  Report Type: Spontaneous
  Country: JP (occurrence: JP)
  Receive Date: 20181003
  Receipt Date: 20200507
  Transmission Date: 20200713
  Serious: Yes (Other)
  Sender: FDA-Public Use
  Company Number: JP-JAZZ-2018-JP-014565

PATIENT
  Sex: Male

DRUGS (7)
  1. ASPARAGINASE [Suspect]
     Active Substance: ASPARAGINASE
     Indication: ANGIOCENTRIC LYMPHOMA
     Dosage: 5000 IU, UNK
     Route: 042
     Dates: start: 20170911
  2. ASPARAGINASE [Suspect]
     Active Substance: ASPARAGINASE
     Indication: ANGIOCENTRIC LYMPHOMA
     Dosage: 5000 IU, UNK
     Route: 030
     Dates: start: 20171010
  3. ASPARAGINASE [Suspect]
     Active Substance: ASPARAGINASE
     Dosage: 5000 IU, UNK
     Route: 030
     Dates: start: 20171012
  4. IFOSFAMIDE. [Concomitant]
     Active Substance: IFOSFAMIDE
     Indication: ANGIOCENTRIC LYMPHOMA
  5. ASPARAGINASE [Suspect]
     Active Substance: ASPARAGINASE
     Dosage: 5000 IU, UNK
     Route: 030
     Dates: start: 20171014
  6. DEXAMETHASONE. [Concomitant]
     Active Substance: DEXAMETHASONE
     Indication: ANGIOCENTRIC LYMPHOMA
  7. METHOTREXATE. [Concomitant]
     Active Substance: METHOTREXATE
     Indication: ANGIOCENTRIC LYMPHOMA

REACTIONS (2)
  - Hypersensitivity [Recovering/Resolving]
  - Pain [Recovered/Resolved]

NARRATIVE: CASE EVENT DATE: 20170911
